FAERS Safety Report 9928215 (Version 1)
Quarter: 2014Q1

REPORT INFORMATION
  Report Type: Spontaneous
  Country: US (occurrence: US)
  Receive Date: 20140227
  Receipt Date: 20140227
  Transmission Date: 20141002
  Serious: Yes (Other)
  Sender: FDA-Public Use
  Company Number: US-JNJFOC-20140213825

PATIENT
  Sex: Female

DRUGS (11)
  1. TOPAMAX [Suspect]
     Indication: SEVERE MYOCLONIC EPILEPSY OF INFANCY
     Route: 048
  2. KEPPRA [Suspect]
     Indication: SEVERE MYOCLONIC EPILEPSY OF INFANCY
     Route: 065
  3. PHENOBARBITAL [Suspect]
     Indication: SEVERE MYOCLONIC EPILEPSY OF INFANCY
     Route: 065
  4. LAMICTAL [Suspect]
     Indication: SEVERE MYOCLONIC EPILEPSY OF INFANCY
     Route: 065
  5. DEPAKOTE [Suspect]
     Indication: SEVERE MYOCLONIC EPILEPSY OF INFANCY
     Route: 065
  6. TRILEPTAL [Suspect]
     Indication: SEVERE MYOCLONIC EPILEPSY OF INFANCY
     Route: 065
  7. CARBATROL [Suspect]
     Indication: SEVERE MYOCLONIC EPILEPSY OF INFANCY
     Route: 065
  8. VALIUM [Suspect]
     Indication: SEVERE MYOCLONIC EPILEPSY OF INFANCY
     Route: 065
  9. CLOBAZAM [Suspect]
     Indication: SEVERE MYOCLONIC EPILEPSY OF INFANCY
     Route: 065
  10. VITAMIN B6 [Concomitant]
     Indication: NUTRITIONAL SUPPLEMENTATION
     Route: 065
  11. LEUKOVORIN [Concomitant]
     Indication: NUTRITIONAL SUPPLEMENTATION
     Route: 065

REACTIONS (2)
  - Convulsion [Unknown]
  - Adverse drug reaction [Unknown]
